FAERS Safety Report 19504520 (Version 1)
Quarter: 2021Q3

REPORT INFORMATION
  Report Type: Spontaneous
  Country: AU (occurrence: AU)
  Receive Date: 20210707
  Receipt Date: 20210707
  Transmission Date: 20211014
  Serious: Yes (Other)
  Sender: FDA-Public Use
  Company Number: AU-PFIZER INC-2021688824

PATIENT
  Age: 18 Year
  Sex: Female

DRUGS (5)
  1. CYCLOPHOSPHAMIDE. [Suspect]
     Active Substance: CYCLOPHOSPHAMIDE
     Indication: NEUROBLASTOMA
     Dosage: UNK, CYCLIC (6 CYCLES OF CADO AND VP/CARBO)
  2. DOXORUBICIN HCL [Suspect]
     Active Substance: DOXORUBICIN HYDROCHLORIDE
     Indication: NEUROBLASTOMA
     Dosage: UNK, CYCLIC (6 CYCLES OF CADO AND VP/CARBO)
  3. VINCRISTINE [Suspect]
     Active Substance: VINCRISTINE
     Indication: NEUROBLASTOMA
     Dosage: UNK, CYCLIC (6 CYCLES OF CADO AND VP/CARBO)
  4. ETOPOSIDE. [Suspect]
     Active Substance: ETOPOSIDE
     Indication: NEUROBLASTOMA
     Dosage: UNK, CYCLIC (6 CYCLES OF CADO AND VP/CARBO)
  5. CARBOPLATIN. [Suspect]
     Active Substance: CARBOPLATIN
     Indication: NEUROBLASTOMA
     Dosage: UNK, CYCLIC (6 CYCLES OF CADO AND VP/CARBO)

REACTIONS (3)
  - Neoplasm progression [Unknown]
  - Refractory cancer [Unknown]
  - Product use in unapproved indication [Unknown]
